FAERS Safety Report 14138706 (Version 1)
Quarter: 2017Q4

REPORT INFORMATION
  Report Type: Report from Study
  Country: US (occurrence: US)
  Receive Date: 20171027
  Receipt Date: 20171027
  Transmission Date: 20180321
  Serious: Yes (Other)
  Sender: FDA-Public Use
  Company Number: US-SHIRE-US201726842

PATIENT
  Age: 9 Year
  Sex: Male

DRUGS (1)
  1. VPRIV [Suspect]
     Active Substance: VELAGLUCERASE ALFA
     Indication: PRODUCT USED FOR UNKNOWN INDICATION
     Route: 065

REACTIONS (12)
  - Upper respiratory tract infection [Unknown]
  - Hunger [Unknown]
  - Irritability [Unknown]
  - Pollakiuria [Unknown]
  - Parosmia [Unknown]
  - Dysgeusia [Unknown]
  - Fatigue [Unknown]
  - Urticaria [Unknown]
  - Restrictive pulmonary disease [Unknown]
  - Headache [Unknown]
  - Thirst [Unknown]
  - Vomiting [Unknown]
